FAERS Safety Report 11642072 (Version 2)
Quarter: 2015Q4

REPORT INFORMATION
  Report Type: Spontaneous
  Country: JP (occurrence: JP)
  Receive Date: 20151019
  Receipt Date: 20151029
  Transmission Date: 20160304
  Serious: Yes (Death, Hospitalization, Other)
  Sender: FDA-Public Use
  Company Number: JP-B.I. PHARMACEUTICALS,INC./RIDGEFIELD-2015-BI-44193NB

PATIENT
  Age: 70 Year
  Sex: Male
  Weight: 58 kg

DRUGS (7)
  1. WARFARIN [Concomitant]
     Active Substance: WARFARIN
     Indication: SINUS NODE DYSFUNCTION
     Dosage: 3 MG
     Route: 048
     Dates: start: 200610, end: 20150805
  2. GILOTRIF [Suspect]
     Active Substance: AFATINIB
     Indication: LUNG ADENOCARCINOMA
     Dosage: 40 MG
     Route: 048
     Dates: start: 20150718, end: 20150728
  3. NEXIUM [Concomitant]
     Active Substance: ESOMEPRAZOLE MAGNESIUM
     Indication: PROPHYLAXIS AGAINST GASTROINTESTINAL ULCER
     Dosage: 20 MG
     Route: 048
     Dates: start: 20150428, end: 20150812
  4. REBAMIPIDE [Concomitant]
     Active Substance: REBAMIPIDE
     Indication: PROPHYLAXIS AGAINST GASTROINTESTINAL ULCER
     Dosage: 300 MG
     Route: 048
     Dates: start: 20150428, end: 20150812
  5. ASTOMIN [Concomitant]
     Active Substance: DIMEMORFAN
     Indication: LUNG ADENOCARCINOMA
     Dosage: 30 MG
     Route: 048
     Dates: start: 20150428, end: 20150812
  6. LOXOPROFEN NA [Concomitant]
     Active Substance: LOXOPROFEN SODIUM
     Indication: LUNG ADENOCARCINOMA
     Dosage: 180 MG
     Route: 048
     Dates: start: 20150428, end: 20150812
  7. AMBROXOL HYDROCHLORIDE OD [Concomitant]
     Indication: LUNG ADENOCARCINOMA
     Dosage: 45 MG
     Route: 048
     Dates: start: 20150428, end: 20150812

REACTIONS (4)
  - Back pain [Not Recovered/Not Resolved]
  - Interstitial lung disease [Fatal]
  - Respiratory failure [Fatal]
  - Depressed level of consciousness [Fatal]

NARRATIVE: CASE EVENT DATE: 20150728
